FAERS Safety Report 4426919-3 (Version None)
Quarter: 2004Q3

REPORT INFORMATION
  Report Type: 
  Country: None (occurrence: None)
  Receive Date: 20040811
  Receipt Date: 20040728
  Transmission Date: 20050211
  Serious: Yes (Hospitalization, Other)
  Sender: FDA-Public Use
  Company Number: USA040774015

PATIENT
  Age: 84 Year
  Sex: Female

DRUGS (1)
  1. FORTEO [Suspect]
     Indication: OSTEOPOROSIS
     Dosage: 20 UG DAY
     Dates: start: 20040104, end: 20040229

REACTIONS (11)
  - ABDOMINAL DISTENSION [None]
  - CONDITION AGGRAVATED [None]
  - DYSPHAGIA [None]
  - ERUCTATION [None]
  - FALL [None]
  - FEMORAL NECK FRACTURE [None]
  - INCREASED UPPER AIRWAY SECRETION [None]
  - OESOPHAGEAL SPASM [None]
  - PAIN [None]
  - PHARMACEUTICAL PRODUCT COMPLAINT [None]
  - PRODUCTIVE COUGH [None]
